FAERS Safety Report 10097830 (Version 1)
Quarter: 2014Q2

REPORT INFORMATION
  Report Type: Spontaneous
  Country: US (occurrence: US)
  Receive Date: 20140423
  Receipt Date: 20140423
  Transmission Date: 20141212
  Serious: No
  Sender: FDA-Public Use
  Company Number: US-BIOGENIDEC-2014BI035524

PATIENT
  Sex: Female

DRUGS (12)
  1. TECFIDERA [Suspect]
     Indication: MULTIPLE SCLEROSIS
     Route: 048
     Dates: start: 20140405
  2. METOPROLOL TARTRATE [Concomitant]
  3. HYDROCHLOROTHIAZIDE [Concomitant]
  4. WELLBUTRIN SR [Concomitant]
  5. IBUPROFEN [Concomitant]
  6. POTASSIUM CL [Concomitant]
  7. TOPAMAX [Concomitant]
  8. XANAX [Concomitant]
  9. FLUOXETINE HCL [Concomitant]
  10. FAMOTIDINE [Concomitant]
  11. BACLOFEN [Concomitant]
  12. COLACE [Concomitant]

REACTIONS (1)
  - Constipation [Unknown]
